FAERS Safety Report 4314355-X (Version None)
Quarter: 2004Q1

REPORT INFORMATION
  Report Type: 
  Country: None (occurrence: None)
  Receive Date: 20040309
  Receipt Date: 20030314
  Transmission Date: 20041129
  Serious: Yes (Death, Hospitalization, Other)
  Sender: FDA-Public Use
  Company Number: PHFR2003GB01323

PATIENT
  Age: 34 Year
  Sex: Male

DRUGS (7)
  1. HALOPERIDOL [Suspect]
     Dosage: 10MG
     Dates: start: 20030401
  2. HALOPERIDOL [Suspect]
     Dosage: 20MG
     Dates: start: 20030402
  3. HALOPERIDOL [Suspect]
     Dosage: 30MG
  4. CLONAZEPAM [Suspect]
     Dosage: 2MG
     Dates: start: 20030401
  5. CLONAZEPAM [Suspect]
     Dosage: 6.5MG
     Dates: start: 20030402
  6. CLONAZEPAM [Suspect]
     Dosage: 8MG
  7. CLOZARIL [Suspect]
     Indication: SCHIZOPHRENIA
     Dosage: 100MG/MANE 250MG/NOCTE
     Route: 048
     Dates: start: 19991015, end: 20030301

REACTIONS (22)
  - CARDIO-RESPIRATORY ARREST [None]
  - CARDIOMEGALY [None]
  - CARDIOMYOPATHY [None]
  - DYSPNOEA [None]
  - DYSPNOEA EXERTIONAL [None]
  - ELECTROCARDIOGRAM ABNORMAL [None]
  - EXERCISE TOLERANCE DECREASED [None]
  - FEAR [None]
  - HALLUCINATION [None]
  - HEART RATE INCREASED [None]
  - HYPERVENTILATION [None]
  - HYPOXIA [None]
  - MENTAL IMPAIRMENT [None]
  - MYOCARDITIS [None]
  - OBESITY [None]
  - PARANOIA [None]
  - PULMONARY EMBOLISM [None]
  - PULMONARY OEDEMA [None]
  - RIGHT VENTRICULAR FAILURE [None]
  - SLEEP APNOEA SYNDROME [None]
  - SNORING [None]
  - WEIGHT INCREASED [None]
